FAERS Safety Report 20672963 (Version 4)
Quarter: 2023Q2

REPORT INFORMATION
  Report Type: Spontaneous
  Country: FR (occurrence: FR)
  Receive Date: 20220405
  Receipt Date: 20230626
  Transmission Date: 20230722
  Serious: Yes (Hospitalization, Other)
  Sender: FDA-Public Use
  Company Number: FR-NOVARTISPH-NVSC2022FR073396

PATIENT
  Age: 17 Year
  Sex: Female

DRUGS (33)
  1. ALPRAZOLAM [Suspect]
     Active Substance: ALPRAZOLAM
     Indication: Product used for unknown indication
     Dosage: 0.5 DOSAGE FORM, QD (.5 DOSAGE FORMS 30 TABLETS)
     Route: 065
     Dates: start: 201611
  2. ALPRAZOLAM [Suspect]
     Active Substance: ALPRAZOLAM
     Dosage: 30 DOSAGE FORM (30 DF,1X)
     Route: 065
     Dates: start: 20161127, end: 20161127
  3. ALPRAZOLAM [Suspect]
     Active Substance: ALPRAZOLAM
     Dosage: UNK
     Route: 065
  4. THALIDOMIDE [Suspect]
     Active Substance: THALIDOMIDE
     Indication: Chronic cutaneous lupus erythematosus
     Dosage: 1 DOSAGE FORM, BID
     Route: 048
     Dates: start: 20160613, end: 20161127
  5. THALIDOMIDE [Suspect]
     Active Substance: THALIDOMIDE
     Dosage: 28 DOSAGE FORM (28 DF,1X)
     Route: 048
     Dates: start: 20161127, end: 20161127
  6. THALIDOMIDE [Suspect]
     Active Substance: THALIDOMIDE
     Dosage: 50 MG, QD
     Route: 065
  7. THALIDOMIDE [Suspect]
     Active Substance: THALIDOMIDE
     Dosage: 1 DOSAGE FORM (0.5 WEEKS, 1.5 TABLET PER DAY IN THE EVENING DURING 1 MONTH THEN 1 TABLET IN THE EVEN
     Route: 065
  8. THALIDOMIDE [Suspect]
     Active Substance: THALIDOMIDE
     Dosage: 100 MG, QD
     Route: 065
  9. THALIDOMIDE [Suspect]
     Active Substance: THALIDOMIDE
     Dosage: 1.5 DOSAGE FORM, QD (1.5 TABLET PER DAY IN THE EVENING DURING 1 MONTH THEN 1 TABLET IN THE EVENING T
     Route: 065
  10. THALIDOMIDE [Suspect]
     Active Substance: THALIDOMIDE
     Dosage: 1 DOSAGE FORM
     Route: 048
     Dates: start: 20160613, end: 20161127
  11. THALIDOMIDE [Suspect]
     Active Substance: THALIDOMIDE
     Dosage: 1 DOSAGE FORM (1.5 TABLET PER DAY IN THE EVENING DURING 1 MONTH THEN 1 TABLET IN THE EVENING TWICE A
     Route: 065
  12. THALIDOMIDE [Suspect]
     Active Substance: THALIDOMIDE
     Dosage: 100 MG, QD
     Route: 065
  13. THALIDOMIDE [Suspect]
     Active Substance: THALIDOMIDE
     Dosage: 1.5 DOSAGE FORM, QD (1.5 TABLET PER DAY IN THE EVENING DURING 1 MONTH THEN 1 TABLET IN THE EVENING T
     Route: 065
  14. THALIDOMIDE [Suspect]
     Active Substance: THALIDOMIDE
     Dosage: 50 MG, QD
     Route: 065
  15. PLAQUENIL [Suspect]
     Active Substance: HYDROXYCHLOROQUINE SULFATE
     Indication: Chronic cutaneous lupus erythematosus
     Dosage: 200 MG, BID
     Route: 065
     Dates: start: 201512, end: 201606
  16. PLAQUENIL [Suspect]
     Active Substance: HYDROXYCHLOROQUINE SULFATE
     Dosage: 2 DOSAGE FORMS45 TABLETS 2 TABS/D
     Route: 048
     Dates: start: 201512, end: 20161127
  17. PLAQUENIL [Suspect]
     Active Substance: HYDROXYCHLOROQUINE SULFATE
     Dosage: 45 DOSAGE FORM (45 DF,1X)
     Route: 048
     Dates: start: 20161127, end: 20161127
  18. PLAQUENIL [Suspect]
     Active Substance: HYDROXYCHLOROQUINE SULFATE
     Dosage: 200 MG (0.5 DAYS)
     Route: 065
  19. PLAQUENIL [Suspect]
     Active Substance: HYDROXYCHLOROQUINE SULFATE
     Route: 065
  20. NIFEDIPINE [Concomitant]
     Active Substance: NIFEDIPINE
     Indication: Product used for unknown indication
     Dosage: 30 MG, QD (IF CHILBLAINS SUFFICIENT QUANTITY FOR 6 MONTHS)
     Route: 065
  21. ACETAMINOPHEN [Concomitant]
     Active Substance: ACETAMINOPHEN
     Indication: Product used for unknown indication
     Dosage: 1 G (1G/6H IF REQUIRED)
     Route: 065
  22. TROPATEPINE HYDROCHLORIDE [Concomitant]
     Active Substance: TROPATEPINE HYDROCHLORIDE
     Indication: Product used for unknown indication
     Dosage: 2 DOSAGE FORM, Q12H(1 TABLET AT 8:00, 1 TABLET AT 19:00)
     Route: 065
  23. IMOVANE [Concomitant]
     Active Substance: ZOPICLONE
     Indication: Product used for unknown indication
     Dosage: UNK
     Route: 065
  24. REVLIMID [Concomitant]
     Active Substance: LENALIDOMIDE
     Indication: Product used for unknown indication
     Dosage: 5 MG, QD
     Route: 065
  25. ASPIRIN [Concomitant]
     Active Substance: ASPIRIN
     Indication: Product used for unknown indication
     Dosage: 100 MG, QD
     Route: 065
  26. MINERAL OIL [Concomitant]
     Active Substance: MINERAL OIL
     Indication: Product used for unknown indication
     Dosage: UNK(LANSOYL SINGLE DOSE 1 DOSE AT 8:00, 1 DOSE AT 12:00, 1 DOSE AT 19:0)
     Route: 065
  27. XANAX [Concomitant]
     Active Substance: ALPRAZOLAM
     Indication: Product used for unknown indication
     Dosage: 1 DOSAGE FORM, Q8H (1 TABLET AT 8:00 , 1 TABLET AT 12:00, 1 TABLET AT 19:00)
     Route: 065
  28. RISPERDAL [Concomitant]
     Active Substance: RISPERIDONE
     Indication: Product used for unknown indication
     Dosage: 1 DOSAGE FORM, Q12H (1 TABLET AT 8:00, 1 TABLET AT 19:00)
     Route: 065
  29. DUPHALAC [Concomitant]
     Active Substance: LACTULOSE
     Indication: Product used for unknown indication
     Dosage: UNK(1 SACHET AT 8 :00, 1 SACHET AT 12 :00 , 1 SACHET AT 19 :00)
     Route: 065
  30. CHLORMADINONE ACETATE [Concomitant]
     Active Substance: CHLORMADINONE ACETATE
     Indication: Product used for unknown indication
     Dosage: 10 MG (1.33 DAYS)
     Route: 065
  31. DESOGESTREL [Concomitant]
     Active Substance: DESOGESTREL
     Indication: Product used for unknown indication
     Dosage: UNK (1 TABLET TO BE STARTED ON THE FIRST DAY OF PERIOD AND TO BE CONTINUED 28 DAYS ON 28 DAYS)
     Route: 065
  32. CHOLECALCIFEROL [Concomitant]
     Active Substance: CHOLECALCIFEROL
     Indication: Product used for unknown indication
     Dosage: UNK (1 AMPOULE EVERY 15 DAYS DURING 2 MONTHS THEN 1 AMPOULE PER MONTH)
     Route: 065
  33. ASPIRIN DL-LYSINE [Concomitant]
     Active Substance: ASPIRIN DL-LYSINE
     Indication: Product used for unknown indication
     Dosage: 100 MG, QD (1 BAG)
     Route: 065

REACTIONS (35)
  - Cardiac arrest [Unknown]
  - Delirium [Unknown]
  - Loss of consciousness [Unknown]
  - Arthralgia [Not Recovered/Not Resolved]
  - Suicide attempt [Recovered/Resolved]
  - Psychotic disorder [Unknown]
  - Toxicity to various agents [Unknown]
  - Weight decreased [Recovered/Resolved]
  - Depression [Recovering/Resolving]
  - Sleep apnoea syndrome [Unknown]
  - Nightmare [Unknown]
  - Delusion [Unknown]
  - Chronic cutaneous lupus erythematosus [Unknown]
  - Hallucination, auditory [Unknown]
  - Back pain [Unknown]
  - Drug intolerance [Unknown]
  - Mental disorder [Unknown]
  - Rash erythematous [Unknown]
  - Psychomotor retardation [Unknown]
  - Persecutory delusion [Unknown]
  - Peripheral coldness [Recovering/Resolving]
  - Frostbite [Recovering/Resolving]
  - Malaise [Unknown]
  - Asthenia [Unknown]
  - Diarrhoea [Unknown]
  - Foot fracture [Unknown]
  - Sleep disorder [Unknown]
  - Condition aggravated [Unknown]
  - Vitamin D deficiency [Unknown]
  - Iron deficiency [Unknown]
  - Fatigue [Unknown]
  - Amnesia [Unknown]
  - Headache [Unknown]
  - Overdose [Unknown]
  - Off label use [Unknown]

NARRATIVE: CASE EVENT DATE: 20160301
